FAERS Safety Report 6990010-2 (Version None)
Quarter: 2010Q3

REPORT INFORMATION
  Report Type: 
  Country: None (occurrence: None)
  Receive Date: 20100916
  Receipt Date: 20100408
  Transmission Date: 20110219
  Serious: Yes (Other)
  Sender: FDA-Public Use
  Company Number: DE-PFIZER INC-2010044910

PATIENT
  Age: 78 Year
  Sex: Female
  Weight: 90 kg

DRUGS (1)
  1. LYRICA [Suspect]
     Indication: PAIN
     Dosage: UNK

REACTIONS (1)
  - PSYCHOTIC DISORDER [None]
